FAERS Safety Report 15835697 (Version 2)
Quarter: 2019Q1

REPORT INFORMATION
  Report Type: Spontaneous
  Country: AU (occurrence: AU)
  Receive Date: 20190117
  Receipt Date: 20190201
  Transmission Date: 20190417
  Serious: Yes (Other)
  Sender: FDA-Public Use
  Company Number: AU-ROCHE-2245658

PATIENT
  Sex: Female
  Weight: 60.7 kg

DRUGS (2)
  1. ETOPOSIDE. [Suspect]
     Active Substance: ETOPOSIDE
     Indication: HAEMOPHAGOCYTIC LYMPHOHISTIOCYTOSIS
     Route: 042
  2. MABTHERA [Suspect]
     Active Substance: RITUXIMAB
     Indication: HAEMOPHAGOCYTIC LYMPHOHISTIOCYTOSIS
     Dosage: 375MG/M2
     Route: 042
     Dates: start: 20181202

REACTIONS (4)
  - Hepatic function abnormal [Unknown]
  - Intentional product use issue [Unknown]
  - Renal impairment [Unknown]
  - Off label use [Unknown]
